FAERS Safety Report 26128944 (Version 1)
Quarter: 2025Q4

REPORT INFORMATION
  Report Type: Spontaneous
  Country: US (occurrence: US)
  Receive Date: 20251208
  Receipt Date: 20251208
  Transmission Date: 20260118
  Serious: Yes (Hospitalization, Other)
  Sender: Onesource Specialty Pharma
  Company Number: US-STRIDES ARCOLAB LIMITED-2025OS001411

PATIENT
  Age: 33 Year
  Sex: Female

DRUGS (1)
  1. GANCICLOVIR SODIUM [Suspect]
     Active Substance: GANCICLOVIR SODIUM
     Indication: Human herpesvirus 6 encephalitis
     Dosage: UNK
     Route: 065

REACTIONS (2)
  - Diabetes insipidus [None]
  - Drug ineffective for unapproved indication [Unknown]
